FAERS Safety Report 16419020 (Version 1)
Quarter: 2019Q2

REPORT INFORMATION
  Report Type: Spontaneous
  Country: US (occurrence: US)
  Receive Date: 20190503
  Receipt Date: 20190503
  Transmission Date: 20190711
  Serious: Yes (Hospitalization)
  Sender: FDA-Public Use
  Company Number: None

PATIENT
  Age: 50 Year
  Sex: Female
  Weight: 165 kg

DRUGS (1)
  1. OLANZAPINE. [Suspect]
     Active Substance: OLANZAPINE
     Dates: end: 20190428

REACTIONS (4)
  - Pulmonary embolism [None]
  - Potentiating drug interaction [None]
  - Peripheral swelling [None]
  - Axillary vein thrombosis [None]

NARRATIVE: CASE EVENT DATE: 20190427
